FAERS Safety Report 7565616-2 (Version None)
Quarter: 2011Q2

REPORT INFORMATION
  Report Type: 
  Country: None (occurrence: None)
  Receive Date: 20110623
  Receipt Date: 20110608
  Transmission Date: 20111010
  Serious: Yes (Hospitalization)
  Sender: FDA-Public Use
  Company Number: CA-JNJFOC-20110605336

PATIENT
  Sex: Male
  Weight: 87 kg

DRUGS (2)
  1. TYLENOL-500 [Concomitant]
     Indication: PREMEDICATION
  2. REMICADE [Suspect]
     Indication: PRODUCT USED FOR UNKNOWN INDICATION
     Route: 042
     Dates: start: 20100509

REACTIONS (1)
  - HIDRADENITIS [None]
